FAERS Safety Report 6894768-2 (Version None)
Quarter: 2010Q3

REPORT INFORMATION
  Report Type: 
  Country: None (occurrence: None)
  Receive Date: 20100730
  Receipt Date: 20100730
  Transmission Date: 20110219
  Serious: Yes (Hospitalization)
  Sender: FDA-Public Use
  Company Number: None

PATIENT
  Sex: Male
  Weight: 81.1939 kg

DRUGS (1)
  1. DASATINIB [Suspect]
     Indication: LUNG NEOPLASM MALIGNANT
     Dosage: 100MG DAILY PO
     Route: 048

REACTIONS (2)
  - PERICARDIAL EFFUSION [None]
  - PLEURAL EFFUSION [None]
